FAERS Safety Report 6269290-7 (Version None)
Quarter: 2009Q3

REPORT INFORMATION
  Report Type: 
  Country: None (occurrence: None)
  Receive Date: 20090715
  Receipt Date: 20090707
  Transmission Date: 20100115
  Serious: Yes (Other)
  Sender: FDA-Public Use
  Company Number: PHEH2009US07237

PATIENT

DRUGS (1)
  1. TRILEPTAL [Suspect]
     Dosage: UNK, UNK
     Route: 048

REACTIONS (3)
  - HYPONATRAEMIA [None]
  - MENTAL DISORDER [None]
  - POLYDIPSIA [None]
